FAERS Safety Report 7687438-4 (Version None)
Quarter: 2011Q3

REPORT INFORMATION
  Report Type: 
  Country: None (occurrence: None)
  Receive Date: 20110816
  Receipt Date: 20110804
  Transmission Date: 20111222
  Serious: Yes (Hospitalization)
  Sender: FDA-Public Use
  Company Number: DE-AMGEN-DEUSP2011039448

PATIENT
  Age: 68 Year
  Sex: Female
  Weight: 57 kg

DRUGS (11)
  1. PROLIA [Suspect]
     Indication: OSTEOPOROSIS
     Dosage: 60 MG, Q6MO
     Route: 058
     Dates: start: 20101005
  2. FOLIC ACID [Concomitant]
     Dosage: 10 MG, QWK
  3. MTX                                /00113801/ [Concomitant]
     Dosage: UNK
     Dates: start: 20070801, end: 20080301
  4. MTX                                /00113801/ [Concomitant]
     Dosage: 15 MG, QWK
     Dates: start: 20101101
  5. ACETAMINOPHEN [Concomitant]
     Dosage: 1 G, UNK
  6. NOVALGIN                           /00169801/ [Concomitant]
     Dosage: 25 UNK, UNK
  7. CALCIUM WITH VITAMIN D             /00944201/ [Concomitant]
  8. MTX                                /00113801/ [Concomitant]
     Dosage: UNK
     Dates: start: 20081001, end: 20090901
  9. MTX                                /00113801/ [Concomitant]
     Dosage: 15 MG, QWK
     Route: 048
     Dates: start: 20070801
  10. LEFLUNOMIDA [Concomitant]
     Dosage: UNK
     Dates: start: 20080501
  11. PANTOPRAZOL                        /01263202/ [Concomitant]
     Dosage: 40 MG, UNK

REACTIONS (1)
  - RHEUMATOID ARTHRITIS [None]
